FAERS Safety Report 5025120-2 (Version None)
Quarter: 2006Q2

REPORT INFORMATION
  Report Type: 
  Country: None (occurrence: None)
  Receive Date: 20060607
  Receipt Date: 20060526
  Transmission Date: 20061013
  Serious: Yes (Hospitalization)
  Sender: FDA-Public Use
  Company Number: 163-20785-06060027

PATIENT
  Age: 74 Year
  Sex: Male

DRUGS (14)
  1. THALOMID [Suspect]
     Indication: MULTIPLE MYELOMA
     Dosage: 200 MG, QD, ORAL
     Route: 048
     Dates: start: 20060104
  2. NOVOLIN N [Concomitant]
  3. LANTUS [Concomitant]
  4. ATIVAN [Concomitant]
  5. ALLOPURINOL [Concomitant]
  6. CLONIDINE [Concomitant]
  7. DILTIAZEM [Concomitant]
  8. DOCUSATE (DOCUSATE) [Concomitant]
  9. FOLVITE (FOLIC ACID) [Concomitant]
  10. LISINOPRIL [Concomitant]
  11. METOPROLOL SUCCINATE [Concomitant]
  12. PREDNISONE TAB [Concomitant]
  13. PROCRIT [Concomitant]
  14. RENAGEL [Concomitant]

REACTIONS (2)
  - SKIN ULCER [None]
  - TOE AMPUTATION [None]
